FAERS Safety Report 9659943 (Version 1)
Quarter: 2013Q4

REPORT INFORMATION
  Report Type: Spontaneous
  Country: US (occurrence: US)
  Receive Date: 20131031
  Receipt Date: 20131031
  Transmission Date: 20140711
  Serious: No
  Sender: FDA-Public Use
  Company Number: US-PFIZER INC-2013307943

PATIENT
  Sex: Female

DRUGS (1)
  1. EFFEXOR XR [Suspect]
     Dosage: UNK

REACTIONS (9)
  - Decreased interest [Unknown]
  - Depressed mood [Unknown]
  - Insomnia [Unknown]
  - Feelings of worthlessness [Unknown]
  - Feeling guilty [Unknown]
  - Irritability [Unknown]
  - Abdominal discomfort [Unknown]
  - Nervousness [Unknown]
  - Tension [Unknown]
